FAERS Safety Report 10094143 (Version 1)
Quarter: 2014Q2

REPORT INFORMATION
  Report Type: Spontaneous
  Country: IT (occurrence: IT)
  Receive Date: 20140422
  Receipt Date: 20140422
  Transmission Date: 20141212
  Serious: Yes (Disabling)
  Sender: FDA-Public Use
  Company Number: IT-BRISTOL-MYERS SQUIBB COMPANY-20636718

PATIENT
  Age: 82 Year
  Sex: Female

DRUGS (7)
  1. METFORMIN HCL [Suspect]
     Indication: DIABETES MELLITUS
     Dosage: TILL 09-DEC-2013
     Route: 048
     Dates: start: 20050204
  2. SOLOSA [Suspect]
     Indication: DIABETES MELLITUS
     Dosage: 1DF:30X4 MG TABLET IN BLISTER PVC/AL?TILL 09-DEC-2013
     Route: 048
     Dates: start: 20070517
  3. EUTIROX [Concomitant]
     Indication: HYPOTHYROIDISM
     Dosage: 1DF:50 X 100 MICROG TABS
     Route: 048
  4. ENALAPRIL [Concomitant]
     Indication: HYPERTENSION
     Dosage: 1DF:14 X 20 MG TABLETS
     Route: 048
  5. NORVASC [Concomitant]
     Indication: HYPERTENSION
     Dosage: 1DF:28 X 5 MG TABLETS
     Route: 048
  6. TAFLUPROST [Concomitant]
     Indication: GLAUCOMA
     Dosage: 1DF:15 MICROG/ML EYE DROPS, SOLUTION, SINGLE-DOSE CONTAINER 30X0.3M1 BOTTLES IN LDPE
     Route: 047
  7. AZOPT [Concomitant]
     Indication: GLAUCOMA
     Dosage: 1DF:10 MG/ML EYE DROPS, OPHTALMIC SUSPENSION 1 X 5 ML BOTTLE (LDPE)
     Route: 047

REACTIONS (3)
  - Asthenia [Recovering/Resolving]
  - Malaise [Recovering/Resolving]
  - Sweat gland disorder [Recovering/Resolving]
